FAERS Safety Report 11006866 (Version 2)
Quarter: 2015Q2

REPORT INFORMATION
  Report Type: Spontaneous
  Country: IL (occurrence: IL)
  Receive Date: 20150409
  Receipt Date: 20150506
  Transmission Date: 20150821
  Serious: Yes (Hospitalization)
  Sender: FDA-Public Use
  Company Number: IL-009507513-1503ISR014844

PATIENT
  Sex: Female

DRUGS (4)
  1. DIPROSPAN [Suspect]
     Active Substance: BETAMETHASONE DIPROPIONATE\BETAMETHASONE SODIUM PHOSPHATE
     Dosage: UNK, ONCE; IN THE HIP
     Dates: start: 20150223
  2. LIDOCAINE. [Suspect]
     Active Substance: LIDOCAINE
     Dosage: UNK, ONCE; IN THE HIP
     Dates: start: 20150223
  3. LIDOCAINE. [Suspect]
     Active Substance: LIDOCAINE
     Dosage: UNK, ONCE; IN THE HIP
     Dates: start: 20150323
  4. DIPROSPAN [Suspect]
     Active Substance: BETAMETHASONE DIPROPIONATE\BETAMETHASONE SODIUM PHOSPHATE
     Dosage: 2 ML , ONCE; IN THE HIP
     Dates: start: 20150323

REACTIONS (2)
  - Arthritis infective [Unknown]
  - Staphylococcal bacteraemia [Unknown]

NARRATIVE: CASE EVENT DATE: 2015
